FAERS Safety Report 17279027 (Version 1)
Quarter: 2020Q1

REPORT INFORMATION
  Report Type: Spontaneous
  Country: AU (occurrence: AU)
  Receive Date: 20200116
  Receipt Date: 20200116
  Transmission Date: 20200409
  Serious: Yes (Other)
  Sender: FDA-Public Use
  Company Number: NVSC2020AU009541

PATIENT
  Age: 40 Year

DRUGS (1)
  1. SECUKINUMAB. [Suspect]
     Active Substance: SECUKINUMAB
     Indication: PRODUCT USED FOR UNKNOWN INDICATION
     Dosage: UNK
     Route: 065

REACTIONS (12)
  - Infection [Unknown]
  - Abdominal discomfort [Unknown]
  - Neutrophil count decreased [Unknown]
  - Lymphocytic infiltration [Unknown]
  - Palate injury [Unknown]
  - Pemphigus [Unknown]
  - Nasopharyngitis [Unknown]
  - Tonsillitis [Unknown]
  - Mouth ulceration [Unknown]
  - Rash vesicular [Unknown]
  - Arthralgia [Unknown]
  - Otitis media [Unknown]
